FAERS Safety Report 7584932-1 (Version None)
Quarter: 2011Q2

REPORT INFORMATION
  Report Type: 
  Country: None (occurrence: None)
  Receive Date: 20110630
  Receipt Date: 20110622
  Transmission Date: 20111010
  Serious: Yes (Hospitalization)
  Sender: FDA-Public Use
  Company Number: ES-B.I. PHARMACEUTICALS,INC./RIDGEFIELD-2011-ES-00155ES

PATIENT
  Age: 30 Year
  Sex: Male

DRUGS (1)
  1. VIRAMUNE [Suspect]
     Indication: HIV INFECTION
     Dosage: 200 MG
     Route: 048
     Dates: start: 20110404, end: 20110505

REACTIONS (9)
  - HYPERSENSITIVITY [None]
  - ODYNOPHAGIA [None]
  - RASH PRURITIC [None]
  - ABDOMINAL PAIN [None]
  - NAUSEA [None]
  - VOMITING [None]
  - HEPATITIS [None]
  - DIARRHOEA [None]
  - PYREXIA [None]
